FAERS Safety Report 21951790 (Version 2)
Quarter: 2023Q2

REPORT INFORMATION
  Report Type: Spontaneous
  Country: US (occurrence: US)
  Receive Date: 20230203
  Receipt Date: 20230615
  Transmission Date: 20230722
  Serious: No
  Sender: FDA-Public Use
  Company Number: US-MYLANLABS-2023M1007412

PATIENT
  Sex: Female

DRUGS (1)
  1. LYRICA [Suspect]
     Active Substance: PREGABALIN
     Indication: Complex regional pain syndrome
     Dosage: 300 MILLIGRAM, QD (4 CAPSULES A DAY)
     Route: 048

REACTIONS (3)
  - Brain fog [Recovering/Resolving]
  - Drug ineffective [Unknown]
  - Condition aggravated [Unknown]
